FAERS Safety Report 9436010 (Version 1)
Quarter: 2013Q3

REPORT INFORMATION
  Report Type: Report from Study
  Country: US (occurrence: US)
  Receive Date: 20130801
  Receipt Date: 20130801
  Transmission Date: 20140515
  Serious: Yes (Hospitalization, Other)
  Sender: FDA-Public Use
  Company Number: US-ABBOTT-13P-163-1125094-00

PATIENT
  Age: 49 Year
  Sex: Female
  Weight: 149.82 kg

DRUGS (12)
  1. DEPAKOTE [Suspect]
     Indication: BIPOLAR DISORDER
     Dates: start: 1996, end: 201307
  2. HUMIRA [Suspect]
     Indication: PYODERMA GANGRENOSUM
     Dates: start: 201201
  3. HUMIRA [Suspect]
     Dates: start: 2012
  4. PREDNISONE [Suspect]
     Indication: PYODERMA GANGRENOSUM
  5. INSULIN [Concomitant]
     Indication: DIABETES MELLITUS
  6. QUINAPRIL [Concomitant]
     Indication: HYPERTENSION
  7. OXYCODONE [Concomitant]
     Indication: PAIN
  8. TRAMADOL [Concomitant]
     Indication: PAIN
  9. REMALON [Concomitant]
     Indication: BIPOLAR DISORDER
  10. CYMBALTA [Concomitant]
     Indication: BIPOLAR DISORDER
  11. METFORMIN [Concomitant]
     Indication: TYPE 2 DIABETES MELLITUS
  12. GLIPIZIDE [Concomitant]
     Indication: TYPE 2 DIABETES MELLITUS

REACTIONS (10)
  - Cardiac failure congestive [Not Recovered/Not Resolved]
  - Nausea [Not Recovered/Not Resolved]
  - Dehydration [Recovered/Resolved]
  - Ulcer haemorrhage [Recovered/Resolved]
  - Blood glucose fluctuation [Not Recovered/Not Resolved]
  - Dyspnoea [Not Recovered/Not Resolved]
  - Influenza [Recovered/Resolved]
  - Hepatic enzyme increased [Unknown]
  - Pneumonia [Not Recovered/Not Resolved]
  - Hypothyroidism [Not Recovered/Not Resolved]
